FAERS Safety Report 14750058 (Version 1)
Quarter: 2018Q2

REPORT INFORMATION
  Report Type: Spontaneous
  Country: US (occurrence: US)
  Receive Date: 20180412
  Receipt Date: 20180412
  Transmission Date: 20180711
  Serious: Yes (Hospitalization, Other)
  Sender: FDA-Public Use
  Company Number: US-ZYDUS-019685

PATIENT
  Age: 14 Year
  Sex: Male

DRUGS (1)
  1. MINOCYCLINE [Suspect]
     Active Substance: MINOCYCLINE\MINOCYCLINE HYDROCHLORIDE
     Indication: ACNE
     Route: 065

REACTIONS (9)
  - Jaundice [Unknown]
  - Fatigue [Unknown]
  - Weight decreased [Unknown]
  - Ocular icterus [Unknown]
  - Vanishing bile duct syndrome [Unknown]
  - Drug-induced liver injury [Unknown]
  - Hyperbilirubinaemia [Unknown]
  - Transaminases increased [Unknown]
  - Cholestasis [Unknown]
